FAERS Safety Report 17590917 (Version 1)
Quarter: 2020Q1

REPORT INFORMATION
  Report Type: Spontaneous
  Country: US (occurrence: US)
  Receive Date: 20200326
  Receipt Date: 20200326
  Transmission Date: 20200409
  Serious: No
  Sender: FDA-Public Use
  Company Number: None

PATIENT
  Age: 58 Year
  Sex: Female

DRUGS (2)
  1. ANASTROZOLE. [Concomitant]
     Active Substance: ANASTROZOLE
  2. VERZENIO [Suspect]
     Active Substance: ABEMACICLIB
     Dosage: ?          OTHER ROUTE:OTHER?
     Dates: start: 2020

REACTIONS (3)
  - Dry eye [None]
  - Vision blurred [None]
  - Ocular hyperaemia [None]

NARRATIVE: CASE EVENT DATE: 20200326
